FAERS Safety Report 5731720-4 (Version None)
Quarter: 2008Q2

REPORT INFORMATION
  Report Type: 
  Country: None (occurrence: None)
  Receive Date: 20080508
  Receipt Date: 20080508
  Transmission Date: 20081010
  Serious: Yes (Death)
  Sender: FDA-Public Use
  Company Number: None

PATIENT
  Age: 63 Year
  Sex: Female
  Weight: 129.2752 kg

DRUGS (2)
  1. HEPARIN SODIUM [Suspect]
     Indication: MYOCARDIAL INFARCTION
     Dosage: 5000 UNITS ONCE IV BOLUS
     Route: 040
     Dates: start: 20071011, end: 20071011
  2. HEPARIN SODIUM [Suspect]
     Indication: MYOCARDIAL INFARCTION
     Dosage: 7800 UNITS ONCE IV BOLUS
     Route: 040
     Dates: start: 20071011, end: 20071011

REACTIONS (2)
  - HAEMATEMESIS [None]
  - HAEMORRHAGE [None]
